FAERS Safety Report 11977522 (Version 3)
Quarter: 2016Q1

REPORT INFORMATION
  Report Type: Spontaneous
  Country: JP (occurrence: JP)
  Receive Date: 20160129
  Receipt Date: 20160222
  Transmission Date: 20160526
  Serious: Yes (Hospitalization)
  Sender: FDA-Public Use
  Company Number: JP-BIOCRYST PHARMACEUTICALS, INC.-2016BCR00006

PATIENT
  Age: 6 Year
  Sex: Male

DRUGS (5)
  1. PREDONINE [Suspect]
     Active Substance: PREDNISOLONE\PREDNISOLONE ACETATE\PREDNISOLONE SODIUM SUCCINATE
     Indication: ASTHMA
     Dosage: 30 MG, UNK
     Route: 042
     Dates: start: 20160118, end: 20160119
  2. MUCOSAL [Concomitant]
     Indication: ASTHMA
     Dosage: 18 MG, 1X/DAY
     Route: 048
     Dates: start: 20160118
  3. RAPIACTA [Suspect]
     Active Substance: PERAMIVIR
     Indication: INFLUENZA
     Dosage: 200 MG, UNK
     Route: 042
     Dates: start: 20160118, end: 20160118
  4. CARBOCISTEINE [Concomitant]
     Active Substance: CARBOCYSTEINE
     Indication: ASTHMA
     Dosage: 600 MG, 1X/DAY
     Route: 048
     Dates: start: 20160118
  5. MIYA-BM [Concomitant]
     Active Substance: CLOSTRIDIUM BUTYRICUM SPORES STRAIN M-55
     Indication: INFLUENZA
     Dosage: 2.4 G, 1X/DAY
     Route: 048
     Dates: start: 20160118, end: 20160119

REACTIONS (1)
  - Anaphylactic reaction [Recovering/Resolving]

NARRATIVE: CASE EVENT DATE: 20160118
